FAERS Safety Report 21117659 (Version 1)
Quarter: 2022Q3

REPORT INFORMATION
  Report Type: Report from Study
  Country: FR (occurrence: FR)
  Receive Date: 20220722
  Receipt Date: 20220722
  Transmission Date: 20221027
  Serious: Yes (Hospitalization, Other)
  Sender: FDA-Public Use
  Company Number: FR-BRISTOL-MYERS SQUIBB COMPANY-2022-072292

PATIENT
  Age: 70 Year
  Sex: Male
  Weight: 88 kg

DRUGS (12)
  1. AZACITIDINE [Suspect]
     Active Substance: AZACITIDINE
     Indication: Myelodysplastic syndrome
     Dosage: 7 DAYS WITHIN THE FIRST 9 CALENDAR DAYS PER 28-DAY CYCLE (75 MG/M2,1 IN 1 D)
     Route: 058
     Dates: start: 20210816, end: 20211228
  2. AZACITIDINE [Suspect]
     Active Substance: AZACITIDINE
     Dosage: 7 DAYS WITHIN THE FIRST 9 CALENDAR DAYS PER 28-DAY CYCLE (56.25 MG/M2,1 IN 1 D
     Route: 058
     Dates: start: 20220131
  3. VENETOCLAX [Suspect]
     Active Substance: VENETOCLAX
     Indication: Myelodysplastic syndrome
     Dosage: 1 IN 1 D 400 MG,1 IN 1 D DAYS 1 - 14 OF EACH 28-DAY CYCLE (400 MG,1 IN 1 D)
     Route: 048
     Dates: start: 20210816, end: 20220102
  4. VENETOCLAX [Suspect]
     Active Substance: VENETOCLAX
     Dosage: 400 MG,1 IN 1 D DAYS 1 - 14 OF EACH 28-DAY CYCLE (400 MG,1 IN 1 D)
     Route: 048
     Dates: start: 20220131
  5. VALACYCLOVIR HYDROCHLORIDE [Concomitant]
     Active Substance: VALACYCLOVIR HYDROCHLORIDE
     Indication: Infection
     Route: 048
     Dates: start: 2020
  6. LEUCOVORIN CALCIUM [Concomitant]
     Active Substance: LEUCOVORIN CALCIUM
     Indication: Infection
     Dosage: 1 IN 1 WK
     Route: 048
     Dates: start: 2020
  7. FLUVASTATIN [Concomitant]
     Active Substance: FLUVASTATIN SODIUM
     Indication: Coronary artery disease
     Dosage: 1 IN 1 D
     Route: 048
     Dates: start: 2017
  8. DEFERASIROX [Concomitant]
     Active Substance: DEFERASIROX
     Indication: Prophylaxis
     Dosage: 3 IN 1 D
     Route: 048
  9. POSACONAZOLE [Concomitant]
     Active Substance: POSACONAZOLE
     Indication: Infection
     Dosage: 1 IN 1 D
     Route: 048
     Dates: start: 20210918, end: 20211122
  10. PENICILLIN V [Concomitant]
     Active Substance: PENICILLIN V
     Indication: Infection
     Dosage: 1 IN 1 D IUM (1 IUM,1 IN 1 D)
     Route: 048
     Dates: start: 20211026
  11. ATOVAQUONE [Concomitant]
     Active Substance: ATOVAQUONE
     Indication: Infection
     Dosage: 2 CAM (1 IN 1 D)? 1 IN 1 D
     Route: 048
     Dates: start: 20211026
  12. EXJADE [Concomitant]
     Active Substance: DEFERASIROX
     Indication: Prophylaxis
     Dosage: 3 IN 1 D 1080 MG (360 MG,3 IN 1 D)
     Route: 048

REACTIONS (1)
  - Pseudomonal sepsis [Recovered/Resolved]

NARRATIVE: CASE EVENT DATE: 20220104
